FAERS Safety Report 11134510 (Version 1)
Quarter: 2015Q2

REPORT INFORMATION
  Report Type: Spontaneous
  Country: FR (occurrence: FR)
  Receive Date: 20150525
  Receipt Date: 20150525
  Transmission Date: 20150821
  Serious: Yes (Life-Threatening)
  Sender: FDA-Public Use
  Company Number: FR-ROCHE-1582386

PATIENT
  Age: 74 Year
  Sex: Female

DRUGS (9)
  1. GINKGO EXTRACT\HEPTAMINOL\TROXERUTIN [Suspect]
     Active Substance: GINKGO\HEPTAMINOL\TROXERUTIN
     Indication: PRODUCT USED FOR UNKNOWN INDICATION
     Route: 048
     Dates: end: 20050204
  2. VALIUM [Suspect]
     Active Substance: DIAZEPAM
     Dosage: 5 MG
     Route: 048
  3. MOSCONTIN [Suspect]
     Active Substance: MORPHINE SULFATE
     Route: 048
  4. LIORESAL [Suspect]
     Active Substance: BACLOFEN
     Indication: MUSCLE SPASMS
     Route: 048
  5. DEROXAT [Suspect]
     Active Substance: PAROXETINE HYDROCHLORIDE
     Indication: DEPRESSION
     Route: 048
  6. RIVOTRIL [Suspect]
     Active Substance: CLONAZEPAM
     Indication: PAIN
     Route: 048
  7. VALIUM [Suspect]
     Active Substance: DIAZEPAM
     Indication: MUSCLE SPASMS
     Route: 048
     Dates: end: 20050204
  8. MOSCONTIN [Suspect]
     Active Substance: MORPHINE SULFATE
     Indication: PAIN
     Route: 048
     Dates: end: 20050204
  9. SEVREDOL [Suspect]
     Active Substance: MORPHINE
     Indication: PAIN
     Route: 048
     Dates: end: 20050204

REACTIONS (3)
  - Respiratory distress [Recovered/Resolved]
  - Bronchospasm [Recovered/Resolved]
  - Acidosis [Recovered/Resolved]

NARRATIVE: CASE EVENT DATE: 20050204
